FAERS Safety Report 9802985 (Version 1)
Quarter: 2014Q1

REPORT INFORMATION
  Report Type: Spontaneous
  Country: US (occurrence: None)
  Receive Date: 20140106
  Receipt Date: 20140106
  Transmission Date: 20141002
  Serious: Yes (Life-Threatening, Hospitalization, Disabling)
  Sender: FDA-Public Use
  Company Number: None

PATIENT
  Age: 71 Year
  Sex: Female
  Weight: 75.3 kg

DRUGS (5)
  1. VORINOSTAT [Suspect]
     Indication: MYCOSIS FUNGOIDES
     Dosage: TOTAL 11 MONTHS
     Route: 048
  2. DEXILANT [Concomitant]
  3. SYNTHROID [Concomitant]
  4. KETOCONAZOLE 2% [Concomitant]
  5. FLUOSINOLIDE [Concomitant]

REACTIONS (1)
  - Progressive multifocal leukoencephalopathy [None]
